FAERS Safety Report 8296092-2 (Version None)
Quarter: 2012Q2

REPORT INFORMATION
  Report Type: 
  Country: None (occurrence: None)
  Receive Date: 20120418
  Receipt Date: 20120413
  Transmission Date: 20120825
  Serious: Yes (Other)
  Sender: FDA-Public Use
  Company Number: US-GLAXOSMITHKLINE-A0960987A

PATIENT
  Age: 89 Year
  Sex: Female

DRUGS (20)
  1. ASPIRIN [Concomitant]
  2. VITAMIN B-12 [Concomitant]
  3. B6 [Concomitant]
  4. ACIPHEX [Concomitant]
  5. ASCORBIC ACID [Concomitant]
  6. CALCIUM CARBONATE [Concomitant]
  7. MAGNESIUM [Concomitant]
  8. NORTRIPTYLINE HCL [Concomitant]
  9. VITAMIN D [Concomitant]
  10. BENICAR [Concomitant]
  11. ONE A DAY MULTIVITAMIN [Concomitant]
  12. COREG [Concomitant]
  13. ZOMETA [Concomitant]
  14. XELODA [Concomitant]
  15. ZOCOR [Concomitant]
  16. TYKERB [Suspect]
     Indication: BREAST CANCER
     Dosage: 1250MG PER DAY
     Route: 048
     Dates: start: 20111204, end: 20111231
  17. MAGNESIUM HYDROXIDE TAB [Concomitant]
  18. UNKNOWN [Concomitant]
  19. VITAMIN B6 [Concomitant]
  20. FOLIC ACID [Concomitant]

REACTIONS (5)
  - DIARRHOEA [None]
  - VOMITING [None]
  - ASTHENIA [None]
  - HEPATIC ENZYME INCREASED [None]
  - NAUSEA [None]
